FAERS Safety Report 19745039 (Version 1)
Quarter: 2021Q3

REPORT INFORMATION
  Report Type: Spontaneous
  Country: US (occurrence: US)
  Receive Date: 20210821
  Receipt Date: 20210821
  Transmission Date: 20211014
  Serious: Yes (Hospitalization)
  Sender: FDA-Public Use
  Company Number: None

PATIENT
  Age: 79 Year
  Sex: Male
  Weight: 84.7 kg

DRUGS (1)
  1. LENALIDOMIDE (CC?5013) [Suspect]
     Active Substance: LENALIDOMIDE
     Dates: end: 20210606

REACTIONS (8)
  - Dysarthria [None]
  - Arteriosclerosis [None]
  - Carotid artery stenosis [None]
  - Ejection fraction decreased [None]
  - Aortic stenosis [None]
  - Facial paralysis [None]
  - Lacunar infarction [None]
  - Cerebrovascular accident [None]

NARRATIVE: CASE EVENT DATE: 20210606
